FAERS Safety Report 22093721 (Version 1)
Quarter: 2023Q1

REPORT INFORMATION
  Report Type: Spontaneous
  Country: US (occurrence: None)
  Receive Date: 20230314
  Receipt Date: 20230314
  Transmission Date: 20230418
  Serious: No
  Sender: FDA-Public Use
  Company Number: None

PATIENT
  Age: 33 Year
  Sex: Female

DRUGS (1)
  1. OVIDREL [Suspect]
     Active Substance: CHORIOGONADOTROPIN ALFA
     Indication: Infertility female
     Dosage: OTHER FREQUENCY : OTHER;?
     Route: 058
     Dates: start: 202303

REACTIONS (3)
  - Syringe issue [None]
  - Wrong technique in device usage process [None]
  - Incorrect dose administered [None]

NARRATIVE: CASE EVENT DATE: 20230314
